FAERS Safety Report 8813084 (Version 1)
Quarter: 2012Q4

REPORT INFORMATION
  Report Type: 
  Country: US (occurrence: US)
  Receive Date: 20120927
  Receipt Date: 20120927
  Transmission Date: 20130627
  Serious: No
  Sender: FDA-Public Use
  Company Number: US-AMGEN-USASP2012051983

PATIENT
  Age: 62 Year
  Sex: Female
  Weight: 125.17 kg

DRUGS (5)
  1. PROLIA [Suspect]
     Indication: OSTEOPOROSIS POSTMENOPAUSAL
     Dosage: 60 mg, q6mo
     Route: 058
     Dates: start: 20120426, end: 20120426
  2. METFORMIN [Concomitant]
     Dosage: UNK
  3. SIMVASTATIN [Concomitant]
     Dosage: UNK
  4. EXFORGE [Concomitant]
     Dosage: UNK
  5. VITAMIN D /00107901/ [Concomitant]
     Dosage: UNK

REACTIONS (1)
  - Psoriasis [Recovering/Resolving]
